FAERS Safety Report 5818111-2 (Version None)
Quarter: 2008Q3

REPORT INFORMATION
  Report Type: 
  Country: None (occurrence: None)
  Receive Date: 20080722
  Receipt Date: 20071102
  Transmission Date: 20090109
  Serious: No
  Sender: FDA-Public Use
  Company Number: US-BAYER-US-2007-039253

PATIENT
  Age: 51 Year
  Sex: Female
  Weight: 69 kg

DRUGS (1)
  1. MAGNEVIST [Suspect]
     Indication: NUCLEAR MAGNETIC RESONANCE IMAGING
     Dosage: UNIT DOSE: 15 ML
     Route: 042
     Dates: start: 20070609, end: 20070609

REACTIONS (3)
  - ARTHRALGIA [None]
  - INJECTION SITE IRRITATION [None]
  - INJECTION SITE PAIN [None]
